FAERS Safety Report 6064136-4 (Version None)
Quarter: 2009Q1

REPORT INFORMATION
  Report Type: 
  Country: None (occurrence: None)
  Receive Date: 20090204
  Receipt Date: 20090126
  Transmission Date: 20090719
  Serious: Yes (Other)
  Sender: FDA-Public Use
  Company Number: DK-BAYER-200911875GPV

PATIENT
  Sex: Female

DRUGS (1)
  1. MIRENA [Suspect]
     Indication: PROPHYLAXIS
     Route: 015
     Dates: start: 20080822, end: 20081208

REACTIONS (1)
  - BREAST CANCER [None]
